FAERS Safety Report 6552140-9 (Version None)
Quarter: 2010Q1

REPORT INFORMATION
  Report Type: 
  Country: None (occurrence: None)
  Receive Date: 20100126
  Receipt Date: 20100120
  Transmission Date: 20100710
  Serious: Yes (Hospitalization)
  Sender: FDA-Public Use
  Company Number: JP-SANOFI-AVENTIS-2009SA003275

PATIENT
  Age: 74 Year
  Sex: Female
  Weight: 40 kg

DRUGS (10)
  1. LANTUS [Suspect]
     Indication: DIABETES MELLITUS
     Dosage: DOSE:14 UNIT(S)
     Route: 058
     Dates: start: 20091101, end: 20091111
  2. PLAVIX [Suspect]
     Indication: ANGINA PECTORIS
     Route: 048
     Dates: start: 20051028, end: 20091117
  3. MICARDIS [Suspect]
     Indication: HYPERTENSION
     Route: 048
     Dates: start: 20091005, end: 20091111
  4. MEVALOTIN [Concomitant]
     Indication: HYPERLIPIDAEMIA
     Route: 048
     Dates: start: 20090526
  5. ASPIRIN [Concomitant]
     Indication: ANGINA PECTORIS
     Route: 048
     Dates: start: 20090831
  6. PARIET [Concomitant]
     Route: 048
     Dates: start: 20090831
  7. CALBLOCK [Concomitant]
     Indication: HYPERTENSION
     Route: 048
     Dates: start: 20091031
  8. SIGMART [Concomitant]
     Indication: ANGINA PECTORIS
     Route: 048
     Dates: start: 20090831
  9. METHYCOBAL [Concomitant]
     Indication: DIABETIC NEPHROPATHY
     Route: 048
     Dates: start: 20060206
  10. MAINTATE [Concomitant]
     Indication: ANGINA PECTORIS
     Route: 048
     Dates: start: 20091109

REACTIONS (1)
  - HEPATIC FUNCTION ABNORMAL [None]
